FAERS Safety Report 8426256 (Version 2)
Quarter: 2015Q2

REPORT INFORMATION
  Report Type: Report from Study
  Country: FR (occurrence: FR)
  Receive Date: 20120227
  Receipt Date: 20150624
  Transmission Date: 20150821
  Serious: Yes (Other)
  Sender: FDA-Public Use
  Company Number: FR-BRISTOL-MYERS SQUIBB COMPANY-16409179

PATIENT
  Age: 57 Year
  Sex: Male

DRUGS (3)
  1. PEMETREXED DISODIUM [Suspect]
     Active Substance: PEMETREXED DISODIUM
     Indication: NON-SMALL CELL LUNG CANCER
     Route: 042
  2. CISPLATIN. [Suspect]
     Active Substance: CISPLATIN
     Indication: NON-SMALL CELL LUNG CANCER
     Route: 042
  3. CETUXIMAB [Suspect]
     Active Substance: CETUXIMAB
     Indication: NON-SMALL CELL LUNG CANCER
     Route: 042

REACTIONS (2)
  - Febrile bone marrow aplasia [Recovered/Resolved]
  - Colitis [Recovered/Resolved]

NARRATIVE: CASE EVENT DATE: 20110825
